FAERS Safety Report 23398135 (Version 1)
Quarter: 2024Q1

REPORT INFORMATION
  Report Type: Spontaneous
  Country: US (occurrence: US)
  Receive Date: 20240112
  Receipt Date: 20240112
  Transmission Date: 20240410
  Serious: No
  Sender: FDA-Public Use
  Company Number: US-VERTEX PHARMACEUTICALS-2024-000267

PATIENT

DRUGS (1)
  1. TRIKAFTA [Suspect]
     Active Substance: ELEXACAFTOR\IVACAFTOR\TEZACAFTOR
     Indication: Cystic fibrosis
     Dosage: UNK
     Route: 048
     Dates: start: 202107

REACTIONS (7)
  - Mental disorder [Unknown]
  - Emotional disorder [Unknown]
  - Anxiety [Unknown]
  - Feeling abnormal [Unknown]
  - Mood altered [Unknown]
  - Depression [Unknown]
  - Depressed mood [Unknown]
